FAERS Safety Report 6006251-7 (Version None)
Quarter: 2008Q4

REPORT INFORMATION
  Report Type: 
  Country: None (occurrence: None)
  Receive Date: 20081217
  Receipt Date: 20081208
  Transmission Date: 20090506
  Serious: Yes (Hospitalization)
  Sender: FDA-Public Use
  Company Number: US-ELI_LILLY_AND_COMPANY-US200812002458

PATIENT
  Sex: Male
  Weight: 107.94 kg

DRUGS (5)
  1. BYETTA [Suspect]
     Dosage: 5 UG, 2/D
     Route: 058
     Dates: start: 20080901, end: 20081001
  2. BYETTA [Suspect]
     Dosage: 10 UG, 2/D
     Route: 058
     Dates: start: 20081001
  3. GLYBURIDE [Concomitant]
     Indication: TYPE 2 DIABETES MELLITUS
  4. METFORMIN HCL [Concomitant]
     Indication: TYPE 2 DIABETES MELLITUS
     Dosage: UNK, UNKNOWN
  5. PERCOCET [Concomitant]
     Indication: BONE DISORDER
     Dosage: UNK, UNKNOWN

REACTIONS (5)
  - BLOOD GLUCOSE INCREASED [None]
  - DRUG INEFFECTIVE [None]
  - KNEE ARTHROPLASTY [None]
  - MALAISE [None]
  - WEIGHT INCREASED [None]
